FAERS Safety Report 9059642 (Version 2)
Quarter: 2013Q4

REPORT INFORMATION
  Report Type: Spontaneous
  Country: IT (occurrence: IT)
  Receive Date: 20130212
  Receipt Date: 20131212
  Transmission Date: 20140711
  Serious: Yes (Hospitalization)
  Sender: FDA-Public Use
  Company Number: IT-RANBAXY-2013R1-65084

PATIENT
  Age: 56 Year
  Sex: Female

DRUGS (6)
  1. VENLAFAXINE [Suspect]
     Indication: PRODUCT USED FOR UNKNOWN INDICATION
     Dosage: 21 DOSAGE UNITS, COMPLETE
     Route: 048
     Dates: start: 20120805, end: 20120805
  2. PARACETAMOL [Suspect]
     Indication: PRODUCT USED FOR UNKNOWN INDICATION
     Dosage: 28 DOSAGE UNITS, COMPLETE
     Route: 048
     Dates: start: 20120805, end: 20120805
  3. CIPRALEX [Suspect]
     Indication: PRODUCT USED FOR UNKNOWN INDICATION
     Dosage: 18 DOSAGE UNITS, COMPLETE
     Route: 048
     Dates: start: 20120805, end: 20120805
  4. PATROL [Suspect]
     Indication: PRODUCT USED FOR UNKNOWN INDICATION
     Dosage: 4 DOSAGE UNITS, COMPLETE
     Route: 048
     Dates: start: 20120805, end: 20120805
  5. MOMENT [Suspect]
     Indication: PRODUCT USED FOR UNKNOWN INDICATION
     Dosage: 18 DOSAGE UNITS, COMPLETE
     Route: 048
     Dates: start: 20120805, end: 20120805
  6. LEXOTAN [Suspect]
     Indication: PRODUCT USED FOR UNKNOWN INDICATION
     Dosage: 51 DOSAGE UNITS, COMPLETE
     Route: 048
     Dates: start: 20120805, end: 20120805

REACTIONS (4)
  - Somnolence [Recovering/Resolving]
  - Respiratory acidosis [Recovering/Resolving]
  - Respiratory depression [Recovering/Resolving]
  - Intentional overdose [Recovering/Resolving]
